FAERS Safety Report 7201503-7 (Version None)
Quarter: 2010Q4

REPORT INFORMATION
  Report Type: 
  Country: None (occurrence: None)
  Receive Date: 20101216
  Receipt Date: 20101013
  Transmission Date: 20110411
  Serious: Yes (Other)
  Sender: FDA-Public Use
  Company Number: CS# 101013151

PATIENT
  Sex: Female

DRUGS (1)
  1. PRAMOSONE [Suspect]
     Indication: RASH
     Dosage: 1 TIME TO HER FACE
     Dates: start: 20101012

REACTIONS (1)
  - APPLICATION SITE SWELLING [None]
